FAERS Safety Report 7109290-8 (Version None)
Quarter: 2010Q4

REPORT INFORMATION
  Report Type: 
  Country: None (occurrence: None)
  Receive Date: 20101117
  Receipt Date: 20101104
  Transmission Date: 20110411
  Serious: Yes (Life-Threatening)
  Sender: FDA-Public Use
  Company Number: NO-MYLANLABS-2010S1020397

PATIENT
  Age: 57 Year
  Sex: Female

DRUGS (1)
  1. METOPROLOL [Suspect]
     Indication: VENTRICULAR FIBRILLATION
     Route: 065

REACTIONS (2)
  - CARDIAC FIBRILLATION [None]
  - PRODUCT SUBSTITUTION ISSUE [None]
